FAERS Safety Report 20541404 (Version 1)
Quarter: 2022Q1

REPORT INFORMATION
  Report Type: Spontaneous
  Country: FR (occurrence: FR)
  Receive Date: 20220302
  Receipt Date: 20220302
  Transmission Date: 20220423
  Serious: Yes (Hospitalization)
  Sender: FDA-Public Use
  Company Number: FR-JNJFOC-20210951275

PATIENT
  Age: 89 Year
  Sex: Male

DRUGS (6)
  1. XARELTO [Interacting]
     Active Substance: RIVAROXABAN
     Indication: Atrial fibrillation
     Dosage: 20 MG, QD
     Route: 048
     Dates: start: 2016, end: 20210528
  2. IMBRUVICA [Interacting]
     Active Substance: IBRUTINIB
     Indication: Chronic lymphocytic leukaemia
     Route: 048
     Dates: start: 20210517, end: 20210528
  3. PANTOPRAZOLE [Concomitant]
     Active Substance: PANTOPRAZOLE
  4. ALGINIC ACID\ALUMINUM HYDROXIDE [Concomitant]
     Active Substance: ALGINIC ACID\ALUMINUM HYDROXIDE
  5. AVODART [Concomitant]
     Active Substance: DUTASTERIDE
  6. EZETIMIBE\SIMVASTATIN [Concomitant]
     Active Substance: EZETIMIBE\SIMVASTATIN

REACTIONS (4)
  - Drug interaction [Recovering/Resolving]
  - Haematuria [Recovering/Resolving]
  - Haemothorax [Recovering/Resolving]
  - Cerebral haematoma [Recovering/Resolving]
